FAERS Safety Report 5071301-1 (Version None)
Quarter: 2006Q3

REPORT INFORMATION
  Report Type: 
  Country: None (occurrence: None)
  Receive Date: 20060803
  Receipt Date: 20060803
  Transmission Date: 20061208
  Serious: No
  Sender: FDA-Public Use
  Company Number: None

PATIENT
  Age: 50 Year
  Sex: Male

DRUGS (3)
  1. EPZICOM [Suspect]
     Indication: HIV INFECTION
     Dosage: 1 PILL ONCE A DAY
     Dates: start: 20041208, end: 20050726
  2. KALETRA [Suspect]
     Indication: HIV INFECTION
     Dosage: 3 CAPSULES TWICE A DAY
     Dates: start: 20041208, end: 20050726
  3. TERAZOSIN HCL [Concomitant]

REACTIONS (10)
  - ABDOMINAL PAIN [None]
  - ABDOMINAL TENDERNESS [None]
  - AUTOIMMUNE HEPATITIS [None]
  - DYSPNOEA [None]
  - FATIGUE [None]
  - HEPATOCELLULAR DAMAGE [None]
  - HEPATOTOXICITY [None]
  - IMMUNE RECONSTITUTION SYNDROME [None]
  - LIVER TENDERNESS [None]
  - NAUSEA [None]
